FAERS Safety Report 4590428-1 (Version None)
Quarter: 2005Q1

REPORT INFORMATION
  Report Type: 
  Country: None (occurrence: None)
  Receive Date: 20050224
  Receipt Date: 20041104
  Transmission Date: 20050727
  Serious: Yes (Life-Threatening, Other)
  Sender: FDA-Public Use
  Company Number: JP-MERCK-0411USA01135

PATIENT
  Age: 11 Month
  Sex: Female

DRUGS (8)
  1. COSMEGEN [Suspect]
     Indication: NEPHROBLASTOMA
     Route: 042
     Dates: start: 20031231, end: 20031231
  2. COSMEGEN [Suspect]
     Route: 042
     Dates: start: 20040115, end: 20040115
  3. ONCOVIN [Suspect]
     Indication: NEPHROBLASTOMA
     Route: 042
     Dates: start: 20040101, end: 20040101
  4. ONCOVIN [Suspect]
     Route: 042
     Dates: start: 20040108, end: 20040108
  5. ONCOVIN [Suspect]
     Route: 042
     Dates: start: 20040115, end: 20040115
  6. ONCOVIN [Suspect]
     Route: 042
     Dates: start: 20040122, end: 20040122
  7. AMPHOTERICIN B [Concomitant]
     Indication: INFECTION PROPHYLAXIS
     Route: 065
     Dates: start: 20040106, end: 20040223
  8. SULFAMETHOXAZOLE AND TRIMETHOPRIM [Concomitant]
     Indication: INFECTION PROPHYLAXIS
     Route: 065
     Dates: start: 20040106, end: 20040223

REACTIONS (4)
  - ANAEMIA [None]
  - HEPATIC FAILURE [None]
  - PLATELET COUNT DECREASED [None]
  - VENOOCCLUSIVE LIVER DISEASE [None]
